FAERS Safety Report 6661398-7 (Version None)
Quarter: 2010Q1

REPORT INFORMATION
  Report Type: 
  Country: None (occurrence: None)
  Receive Date: 20100331
  Receipt Date: 20100326
  Transmission Date: 20100710
  Serious: Yes (Life-Threatening, Hospitalization, Other)
  Sender: FDA-Public Use
  Company Number: PHHY2010HU16479

PATIENT
  Sex: Male
  Weight: 69 kg

DRUGS (5)
  1. EUCREAS [Suspect]
     Dosage: 850/50 MG  (2 X 1 TABLET)
  2. ATORVASTATIN CALCIUM [Concomitant]
     Dosage: 40 MG
     Dates: start: 20100310
  3. ASPIRIN [Concomitant]
     Dosage: 120 MG
     Dates: start: 20100310
  4. RAMIPRIL [Concomitant]
     Dosage: 5 MG
     Dates: start: 20100310
  5. CIPROFLOXACIN [Concomitant]
     Dosage: UNK
     Dates: start: 20100310

REACTIONS (3)
  - ABDOMINAL PAIN UPPER [None]
  - BLOOD GLUCOSE ABNORMAL [None]
  - PANCREATIC CARCINOMA [None]
